FAERS Safety Report 5132310-7 (Version None)
Quarter: 2006Q4

REPORT INFORMATION
  Report Type: 
  Country: None (occurrence: None)
  Receive Date: 20061019
  Receipt Date: 20061019
  Transmission Date: 20070319
  Serious: Yes (Other)
  Sender: FDA-Public Use
  Company Number: None

PATIENT
  Sex: Female
  Weight: 131.5431 kg

DRUGS (4)
  1. AMBIEN CR [Suspect]
     Indication: INSOMNIA
     Dosage: 1 TABLET 1 AT NIGHT
     Dates: start: 20060913
  2. AMBIEN CR [Suspect]
     Indication: INSOMNIA
     Dosage: 1 TABLET 1 AT NIGHT
     Dates: start: 20060914
  3. AMBIEN CR [Suspect]
     Indication: INSOMNIA
     Dosage: 1 TABLET 1 AT NIGHT
     Dates: start: 20060915
  4. AMBIEN CR [Suspect]
     Indication: INSOMNIA
     Dosage: 1 TABLET 1 AT NIGHT
     Dates: start: 20060916

REACTIONS (5)
  - ABNORMAL SLEEP-RELATED EVENT [None]
  - AMNESIA [None]
  - DEPRESSED LEVEL OF CONSCIOUSNESS [None]
  - EMOTIONAL DISTRESS [None]
  - FEAR [None]
